FAERS Safety Report 21199924 (Version 1)
Quarter: 2022Q3

REPORT INFORMATION
  Report Type: Spontaneous
  Country: FR (occurrence: FR)
  Receive Date: 20220811
  Receipt Date: 20220811
  Transmission Date: 20221027
  Serious: Yes (Death, Life-Threatening)
  Sender: FDA-Public Use
  Company Number: FR-drreddys-LIT/FRA/22/0153213

PATIENT
  Age: 70 Year
  Sex: Female

DRUGS (2)
  1. ICATIBANT [Suspect]
     Active Substance: ICATIBANT ACETATE
     Indication: Angioedema
  2. RAMIPRIL [Concomitant]
     Active Substance: RAMIPRIL
     Indication: Peripheral arterial occlusive disease

REACTIONS (2)
  - Death [Fatal]
  - Drug ineffective [Fatal]
